FAERS Safety Report 5888746 (Version 13)
Quarter: 2020Q3

REPORT INFORMATION
  Report Type: Spontaneous
  Country: US (occurrence: US)
  Receive Date: 20050930
  Receipt Date: 20110707
  Transmission Date: 20201104
  Serious: Yes (Hospitalization, Other)
  Sender: FDA-Public Use
  Company Number: PHEH2005US10715

PATIENT
  Age: 47 Year
  Sex: Female
  Weight: 99.77 kg

DRUGS (39)
  1. AREDIA [Suspect]
     Active Substance: PAMIDRONATE DISODIUM
     Indication: METASTASES TO BONE
     Dosage: 90 MG, QMO
     Route: 042
     Dates: start: 19990422, end: 200411
  2. ALPRAZOLAM. [Concomitant]
     Active Substance: ALPRAZOLAM
     Dosage: UNK, PRN
  3. FERROUS SULFATE. [Concomitant]
     Active Substance: FERROUS SULFATE
  4. LIPITOR [Concomitant]
     Active Substance: ATORVASTATIN CALCIUM
     Dosage: 10 MG, QD
  5. NASACORT AQ [Concomitant]
     Active Substance: TRIAMCINOLONE ACETONIDE
  6. EFFEXOR XR [Concomitant]
     Active Substance: VENLAFAXINE HYDROCHLORIDE
     Dosage: 75 MG, QD
  7. XANAX [Concomitant]
     Active Substance: ALPRAZOLAM
     Indication: ANXIETY
     Dosage: 0.25 MG, PRN
  8. POTASSIUM [Concomitant]
     Active Substance: POTASSIUM
  9. ALLOPURINOL. [Concomitant]
     Active Substance: ALLOPURINOL
     Indication: GOUT
     Dosage: 100 MG, BID
  10. VITAMIN K [Concomitant]
     Active Substance: PHYTONADIONE
     Dosage: 10 MG Q8H X 3 DOSES
     Route: 058
  11. PRILOSEC [Concomitant]
     Active Substance: OMEPRAZOLE MAGNESIUM
     Dosage: 20MG
  12. NEURONTIN [Concomitant]
     Active Substance: GABAPENTIN
     Indication: NEUROPATHY PERIPHERAL
     Dosage: 300 MG, QD
  13. ALBUTEROL SULFATE. [Concomitant]
     Active Substance: ALBUTEROL SULFATE
     Indication: ASTHMA
     Dosage: UNK, PRN
  14. PROTONIX [Concomitant]
     Active Substance: PANTOPRAZOLE SODIUM
     Dosage: 40 MG, QD
  15. MICRO?K [Concomitant]
     Active Substance: POTASSIUM CHLORIDE
     Dosage: 10 MEQ, BID
  16. OPIUM. [Suspect]
     Active Substance: OPIUM
  17. INTERFERON NOS [Concomitant]
     Active Substance: INTERFERON
  18. ZAROXOLYN [Concomitant]
     Active Substance: METOLAZONE
  19. TRAZODONE HYDROCHLORIDE. [Concomitant]
     Active Substance: TRAZODONE HYDROCHLORIDE
     Dosage: 150MG
  20. PROLEUKIN [Concomitant]
     Active Substance: ALDESLEUKIN
     Dosage: UNK, UNK
     Dates: start: 20021014, end: 200304
  21. INTERFERON NOS [Concomitant]
     Active Substance: INTERFERON
     Dates: start: 2002
  22. LASIX [Concomitant]
     Active Substance: FUROSEMIDE
     Indication: OEDEMA
     Dosage: 20 MG, QD
  23. THALIDOMIDE [Concomitant]
     Active Substance: THALIDOMIDE
     Dosage: 100 MG, QD
  24. UNSPECIFIED INGREDIENT [Suspect]
     Active Substance: UNSPECIFIED INGREDIENT
  25. COUMADIN [Concomitant]
     Active Substance: WARFARIN SODIUM
     Indication: THROMBOSIS PROPHYLAXIS
     Dosage: 7.5 MG, QD
     Route: 048
     Dates: start: 1984
  26. VASOTEC [Concomitant]
     Active Substance: ENALAPRIL MALEATE
     Dosage: 5 MG, QD
  27. ATARAX [Concomitant]
     Active Substance: HYDROXYZINE HYDROCHLORIDE
  28. LIPITOR [Concomitant]
     Active Substance: ATORVASTATIN CALCIUM
     Indication: HYPERCHOLESTEROLAEMIA
     Dosage: 10 MG, QD
     Route: 048
  29. RANITIDINE. [Concomitant]
     Active Substance: RANITIDINE
     Dosage: 150 MG, BID
     Route: 048
  30. MERIDIA [Concomitant]
     Active Substance: SIBUTRAMINE HYDROCHLORIDE
  31. TETRAHYDROCANNABINOL [Suspect]
     Active Substance: DRONABINOL
  32. PROLEUKIN [Concomitant]
     Active Substance: ALDESLEUKIN
     Indication: RENAL CELL CARCINOMA
     Route: 058
     Dates: start: 199905, end: 20000122
  33. ZOFRAN [Concomitant]
     Active Substance: ONDANSETRON HYDROCHLORIDE
  34. ALDACTONE [Concomitant]
     Active Substance: SPIRONOLACTONE
     Dosage: 100 MG, BID
  35. DURAGESIC [Concomitant]
     Active Substance: FENTANYL
     Dosage: 25 MG, Q72H
  36. ZOLOFT [Concomitant]
     Active Substance: SERTRALINE HYDROCHLORIDE
     Dosage: 50 MG, QD
  37. MS CONTIN [Concomitant]
     Active Substance: MORPHINE SULFATE
     Dosage: 15 MG, Q12H
  38. MSIR [Concomitant]
     Active Substance: MORPHINE SULFATE
     Dosage: 15 MG, Q12H
  39. PRILOSEC [Concomitant]
     Active Substance: OMEPRAZOLE MAGNESIUM
     Dosage: 20MG

REACTIONS (47)
  - Back pain [Recovered/Resolved]
  - Thrombophlebitis [Unknown]
  - Osteoarthritis [Recovering/Resolving]
  - Hiatus hernia [Unknown]
  - Depressed level of consciousness [Recovered/Resolved]
  - Acute kidney injury [Recovering/Resolving]
  - Metastatic renal cell carcinoma [Unknown]
  - Osteonecrosis of jaw [Unknown]
  - Inflammation [Unknown]
  - Gingival pain [Unknown]
  - Bone cancer [Unknown]
  - Gingival ulceration [Unknown]
  - Urinary incontinence [Unknown]
  - Venous thrombosis [Recovered/Resolved]
  - Hypotension [Recovering/Resolving]
  - Swelling [Recovering/Resolving]
  - Headache [Unknown]
  - Altered state of consciousness [Recovering/Resolving]
  - Fungal infection [Unknown]
  - Musculoskeletal discomfort [Unknown]
  - Bone disorder [Unknown]
  - Lymphadenitis [Unknown]
  - Haematemesis [Unknown]
  - Skin mass [Unknown]
  - Toxicity to various agents [Recovered/Resolved]
  - Metastases to ovary [Unknown]
  - Neoplasm malignant [Unknown]
  - Bacterial infection [Unknown]
  - Tenderness [Unknown]
  - Gastric ulcer [Unknown]
  - Skin ulcer [Not Recovered/Not Resolved]
  - Impaired healing [Not Recovered/Not Resolved]
  - Pyrexia [Recovered/Resolved]
  - Gastrointestinal haemorrhage [Unknown]
  - Cardiac failure congestive [Unknown]
  - Abscess [Unknown]
  - Hypoaesthesia [Unknown]
  - Muscular weakness [Unknown]
  - Erythema [Unknown]
  - Mandibular mass [Unknown]
  - Wound infection [Recovered/Resolved]
  - Lung neoplasm malignant [Unknown]
  - Diverticulum [Unknown]
  - Vision blurred [Unknown]
  - Red blood cell sedimentation rate increased [Unknown]
  - Lymphadenopathy [Unknown]
  - Sepsis [Recovered/Resolved]

NARRATIVE: CASE EVENT DATE: 19990423
